FAERS Safety Report 13786495 (Version 2)
Quarter: 2021Q3

REPORT INFORMATION
  Report Type: Spontaneous
  Country: US (occurrence: US)
  Receive Date: 20170725
  Receipt Date: 20210717
  Transmission Date: 20211014
  Serious: Yes (Hospitalization)
  Sender: FDA-Public Use
  Company Number: US-UNITED THERAPEUTICS-UNT-2017-004500

PATIENT
  Age: 17 Year
  Sex: Female
  Weight: 52.97 kg

DRUGS (5)
  1. REMODULIN [Suspect]
     Active Substance: TREPROSTINIL
     Dosage: 0.06 ?G/KG, CONTINUING
     Route: 058
     Dates: start: 20170413, end: 201704
  2. REMODULIN [Suspect]
     Active Substance: TREPROSTINIL
     Indication: HERITABLE PULMONARY ARTERIAL HYPERTENSION
     Dosage: 0.080 ?G/KG, CONTINUING
     Route: 058
     Dates: start: 20160907
  3. LETAIRIS [Suspect]
     Active Substance: AMBRISENTAN
     Indication: HERITABLE PULMONARY ARTERIAL HYPERTENSION
     Dosage: 10 MG, QD
     Route: 048
     Dates: start: 201609
  4. LETAIRIS [Suspect]
     Active Substance: AMBRISENTAN
     Dosage: UNK
     Route: 048
  5. ADCIRCA [Concomitant]
     Active Substance: TADALAFIL
     Indication: HERITABLE PULMONARY ARTERIAL HYPERTENSION
     Dosage: 40 MG, QD
     Route: 048
     Dates: start: 201609

REACTIONS (3)
  - Infusion site infection [Not Recovered/Not Resolved]
  - Infusion site pain [Unknown]
  - Device intolerance [Unknown]

NARRATIVE: CASE EVENT DATE: 20170327
